FAERS Safety Report 5610513-2 (Version None)
Quarter: 2008Q1

REPORT INFORMATION
  Report Type: 
  Country: None (occurrence: None)
  Receive Date: 20080201
  Receipt Date: 20080125
  Transmission Date: 20080703
  Serious: Yes (Hospitalization)
  Sender: FDA-Public Use
  Company Number: US-JNJFOC-20080106473

PATIENT
  Sex: Female
  Weight: 53.52 kg

DRUGS (4)
  1. REMICADE [Suspect]
     Route: 042
  2. REMICADE [Suspect]
     Indication: CROHN'S DISEASE
     Route: 042
  3. ZEGERID [Concomitant]
  4. LEVSIN [Concomitant]

REACTIONS (1)
  - PANCREATITIS ACUTE [None]
